FAERS Safety Report 13088974 (Version 2)
Quarter: 2017Q1

REPORT INFORMATION
  Report Type: Spontaneous
  Country: FR (occurrence: FR)
  Receive Date: 20170105
  Receipt Date: 20170126
  Transmission Date: 20170428
  Serious: Yes (Hospitalization, Other)
  Sender: FDA-Public Use
  Company Number: FR-PFIZER INC-2016605159

PATIENT
  Age: 67 Year
  Sex: Female

DRUGS (4)
  1. LEXOMIL ROCHE COMPRIME BAGUETT [Concomitant]
  2. GEMCITABINE [Suspect]
     Active Substance: GEMCITABINE\GEMCITABINE HYDROCHLORIDE
     Indication: PANCREATIC CARCINOMA METASTATIC
     Dosage: 1 DF, ONCE WEEKLY
     Route: 041
     Dates: start: 20160805, end: 20161007
  3. CRESTOR [Concomitant]
     Active Substance: ROSUVASTATIN CALCIUM
  4. KARDEGIC [Concomitant]
     Active Substance: ASPIRIN LYSINE

REACTIONS (4)
  - Thrombocytopenia [Unknown]
  - Oedema peripheral [Unknown]
  - Acute kidney injury [Recovering/Resolving]
  - Nephropathy [Recovering/Resolving]

NARRATIVE: CASE EVENT DATE: 20161021
